FAERS Safety Report 8451537-X (Version None)
Quarter: 2012Q2

REPORT INFORMATION
  Report Type: 
  Country: None (occurrence: None)
  Receive Date: 20120620
  Receipt Date: 20120612
  Transmission Date: 20120825
  Serious: Yes (Other)
  Sender: FDA-Public Use
  Company Number: IT-ROCHE-1079562

PATIENT
  Sex: Male

DRUGS (3)
  1. INUVAIR [Concomitant]
  2. XOLAIR [Suspect]
     Indication: ASTHMA
     Dosage: CYLICAL
     Route: 058
     Dates: start: 20091009
  3. PREDNISONE TAB [Concomitant]

REACTIONS (1)
  - VASCULAR ENDOTHELIAL GROWTH FACTOR OVEREXPRESSION [None]
